FAERS Safety Report 6955651-7 (Version None)
Quarter: 2010Q3

REPORT INFORMATION
  Report Type: 
  Country: None (occurrence: None)
  Receive Date: 20100830
  Receipt Date: 20100817
  Transmission Date: 20110219
  Serious: Yes (Death, Other)
  Sender: FDA-Public Use
  Company Number: GB-PFIZER INC-2010081370

PATIENT
  Age: 65 Year
  Sex: Male

DRUGS (1)
  1. PHENYTOIN SODIUM CAP [Suspect]
     Dosage: 300 MG, 1X/DAY EVERY MORNING
     Route: 048

REACTIONS (2)
  - DYSPHAGIA [None]
  - ILL-DEFINED DISORDER [None]
